FAERS Safety Report 9423849 (Version 1)
Quarter: 2013Q3

REPORT INFORMATION
  Report Type: Spontaneous
  Country: US (occurrence: US)
  Receive Date: 20130729
  Receipt Date: 20130729
  Transmission Date: 20140515
  Serious: No
  Sender: FDA-Public Use
  Company Number: US-009507513-1307USA011407

PATIENT
  Sex: Female

DRUGS (2)
  1. SAPHRIS [Suspect]
     Indication: BIPOLAR DISORDER
     Dosage: 10 MG, BID
     Route: 060
     Dates: end: 2013
  2. SAPHRIS [Suspect]
     Dosage: 10 MG, QD
     Route: 060
     Dates: start: 201307

REACTIONS (7)
  - Anger [Recovering/Resolving]
  - Mood swings [Recovering/Resolving]
  - Hostility [Recovering/Resolving]
  - Affect lability [Recovering/Resolving]
  - Depression [Recovering/Resolving]
  - Exposure during pregnancy [Unknown]
  - Inappropriate schedule of drug administration [Unknown]
